FAERS Safety Report 23829873 (Version 1)
Quarter: 2024Q2

REPORT INFORMATION
  Report Type: Spontaneous
  Country: US (occurrence: US)
  Receive Date: 20240508
  Receipt Date: 20240508
  Transmission Date: 20240716
  Serious: No
  Sender: FDA-Public Use
  Company Number: US-LUPIN PHARMACEUTICALS INC.-2024-03669

PATIENT

DRUGS (1)
  1. ALBUTEROL SULFATE [Suspect]
     Active Substance: ALBUTEROL SULFATE
     Indication: Cough
     Dosage: UNK, QD 4 PUFFS A DAY
     Dates: start: 20240423

REACTIONS (4)
  - Dyspnoea [Unknown]
  - Product use in unapproved indication [Unknown]
  - Device delivery system issue [Unknown]
  - Drug dose omission by device [Unknown]
